FAERS Safety Report 8805737 (Version 1)
Quarter: 2012Q4

REPORT INFORMATION
  Report Type: Report from Study
  Country: US (occurrence: US)
  Receive Date: 20120924
  Receipt Date: 20120924
  Transmission Date: 20130627
  Serious: Yes (Hospitalization, Other)
  Sender: FDA-Public Use
  Company Number: US-ABBOTT-12P-163-0980469-00

PATIENT
  Age: 46 Year
  Sex: Female

DRUGS (2)
  1. HUMIRA PEN [Suspect]
     Indication: CROHN^S DISEASE
     Dates: start: 20120504
  2. HUMIRA PEN [Suspect]
     Dates: start: 20120831

REACTIONS (3)
  - Incision site oedema [Recovering/Resolving]
  - Incision site pain [Recovering/Resolving]
  - White blood cell count increased [Unknown]
